FAERS Safety Report 9179784 (Version 1)
Quarter: 2013Q1

REPORT INFORMATION
  Report Type: Spontaneous
  Country: AU (occurrence: AU)
  Receive Date: 20130321
  Receipt Date: 20130321
  Transmission Date: 20140127
  Serious: Yes (Other)
  Sender: FDA-Public Use
  Company Number: AU-ELI_LILLY_AND_COMPANY-AU201302002936

PATIENT
  Age: 53 Year
  Sex: Female
  Weight: 96.5 kg

DRUGS (6)
  1. BYETTA [Suspect]
     Indication: DIABETES MELLITUS
     Dosage: 5 UG, BID
     Route: 058
     Dates: start: 20130117, end: 20130122
  2. EFFEXOR [Concomitant]
     Indication: DEPRESSION
     Dosage: 300 MG, BID
     Dates: start: 2003
  3. NOVOMIX [Concomitant]
     Dosage: 85 U, BID
  4. NORVASC [Concomitant]
     Dosage: 5 MG, QD
  5. NEXIUM [Concomitant]
     Dosage: 40 MG, UNKNOWN
  6. ATIVAN [Concomitant]
     Dosage: 1 DF, PRN

REACTIONS (3)
  - Suicidal ideation [Recovered/Resolved]
  - Mania [Recovered/Resolved]
  - Crying [Recovered/Resolved]
